FAERS Safety Report 9391470 (Version 2)
Quarter: 2013Q3

REPORT INFORMATION
  Report Type: Spontaneous
  Country: CA (occurrence: CA)
  Receive Date: 20130709
  Receipt Date: 20130710
  Transmission Date: 20140515
  Serious: Yes (Death)
  Sender: FDA-Public Use
  Company Number: CA-GLAXOSMITHKLINE-A1029979A

PATIENT
  Age: 87 Year
  Sex: Male

DRUGS (1)
  1. NICORETTE 2 MG [Suspect]
     Indication: SMOKING CESSATION THERAPY
     Route: 002

REACTIONS (3)
  - Nicotine dependence [Unknown]
  - Intentional drug misuse [Unknown]
  - Lung neoplasm malignant [Fatal]
